FAERS Safety Report 8838068 (Version 1)
Quarter: 2012Q4

REPORT INFORMATION
  Report Type: Report from Study
  Country: FR (occurrence: FR)
  Receive Date: 20121012
  Receipt Date: 20121012
  Transmission Date: 20130627
  Serious: Yes (Other)
  Sender: FDA-Public Use
  Company Number: FR-ASTELLAS-2012US010058

PATIENT
  Age: 84 Year
  Sex: Male
  Weight: 62 kg

DRUGS (6)
  1. ERLOTINIB TABLET [Suspect]
     Indication: MALIGNANT LYMPHOID NEOPLASM
     Dosage: 150 mg, UID/QD
     Route: 048
     Dates: start: 20120525, end: 20120607
  2. EXJADE [Concomitant]
     Indication: PRODUCT USED FOR UNKNOWN INDICATION
     Dosage: 1000 mg, Unknown/D
     Route: 048
  3. PRAZEPAM [Concomitant]
     Indication: ANXIETY
     Dosage: 20 mg, Unknown/D
     Route: 048
     Dates: start: 20120425
  4. FUROSEMIDE [Concomitant]
     Indication: HYPERTENSION
     Dosage: 20 mg, Unknown/D
     Route: 048
  5. FLECAINIDE                         /00627102/ [Concomitant]
     Indication: ARRHYTHMIA
     Dosage: 150 mg, Unknown/D
     Route: 048
     Dates: start: 20101117
  6. STILNOX [Concomitant]
     Indication: INSOMNIA
     Dosage: 10 mg, Unknown/D
     Route: 048

REACTIONS (7)
  - Off label use [Unknown]
  - White blood cell count decreased [Unknown]
  - Haemoglobin decreased [Unknown]
  - Platelet morphology abnormal [Unknown]
  - Platelet count decreased [Unknown]
  - Decreased appetite [Recovered/Resolved]
  - Vomiting [Recovered/Resolved]
